FAERS Safety Report 5063998-7 (Version None)
Quarter: 2006Q3

REPORT INFORMATION
  Report Type: 
  Country: None (occurrence: None)
  Receive Date: 20060703
  Receipt Date: 20060323
  Transmission Date: 20061208
  Serious: Yes (Other)
  Sender: FDA-Public Use
  Company Number: 145089USA

PATIENT
  Sex: Female

DRUGS (8)
  1. RIBAVIRIN [Suspect]
     Indication: HEPATITIS C
     Dosage: 200 MILLIGRAM QID ORAL
     Route: 048
     Dates: start: 20060301
  2. PEGASYS [Suspect]
     Indication: HEPATITIS C
     Dates: start: 20060301
  3. BONIVA [Concomitant]
  4. CALCIUM GLUCONATE [Concomitant]
  5. VITAMINS NOS [Concomitant]
  6. ASCORBIC ACID [Concomitant]
  7. COENZYME Q10 [Concomitant]
  8. VITAMIN E [Concomitant]

REACTIONS (1)
  - WHITE BLOOD CELL COUNT DECREASED [None]
